FAERS Safety Report 17327829 (Version 1)
Quarter: 2020Q1

REPORT INFORMATION
  Report Type: Spontaneous
  Country: SE (occurrence: SE)
  Receive Date: 20200127
  Receipt Date: 20200127
  Transmission Date: 20200409
  Serious: Yes (Hospitalization)
  Sender: FDA-Public Use
  Company Number: SE-MYLANLABS-2020M1009067

PATIENT
  Age: 18 Year
  Sex: Male

DRUGS (2)
  1. LERGIGAN (PROMETHAZINE) [Suspect]
     Active Substance: PROMETHAZINE HYDROCHLORIDE
     Indication: PRODUCT USED FOR UNKNOWN INDICATION
     Dosage: ^20-30 ST ? 25 MG^
     Route: 048
     Dates: start: 20180301, end: 20180301
  2. MIRTAZAPINE. [Suspect]
     Active Substance: MIRTAZAPINE
     Indication: PRODUCT USED FOR UNKNOWN INDICATION
     Dosage: ^45 MG, MAX 20 ST^
     Route: 048
     Dates: start: 20180301, end: 20180301

REACTIONS (5)
  - Intentional overdose [Unknown]
  - Vomiting [Unknown]
  - Depressed level of consciousness [Unknown]
  - Intentional self-injury [Unknown]
  - Fatigue [Unknown]

NARRATIVE: CASE EVENT DATE: 20180301
